FAERS Safety Report 16821080 (Version 1)
Quarter: 2019Q3

REPORT INFORMATION
  Report Type: Report from Study
  Country: CN (occurrence: CN)
  Receive Date: 20190918
  Receipt Date: 20190918
  Transmission Date: 20191005
  Serious: Yes (Other)
  Sender: FDA-Public Use
  Company Number: CN-ROCHE-2402764

PATIENT

DRUGS (4)
  1. PAEONIA LACTIFLORA ROOT [Suspect]
     Active Substance: PAEONIA LACTIFLORA ROOT
     Indication: HER-2 POSITIVE BREAST CANCER
     Route: 048
  2. TRASTUZUMAB. [Suspect]
     Active Substance: TRASTUZUMAB
     Dosage: MAINTAIN DOSE
     Route: 042
  3. TRASTUZUMAB. [Suspect]
     Active Substance: TRASTUZUMAB
     Indication: HER-2 POSITIVE BREAST CANCER
     Dosage: FIRST DOSE
     Route: 042
  4. CYANIDIN-3-O-GLUCOSIDE [Suspect]
     Active Substance: CYANIDIN 3-GLUCOSIDE
     Indication: HER-2 POSITIVE BREAST CANCER
     Route: 048

REACTIONS (4)
  - Vomiting [Unknown]
  - Hepatic function abnormal [Unknown]
  - Bone marrow failure [Unknown]
  - Nausea [Unknown]
